FAERS Safety Report 6306905-9 (Version None)
Quarter: 2009Q3

REPORT INFORMATION
  Report Type: 
  Country: None (occurrence: None)
  Receive Date: 20090811
  Receipt Date: 20090811
  Transmission Date: 20100115
  Serious: Yes (Other)
  Sender: FDA-Public Use
  Company Number: None

PATIENT
  Sex: Female
  Weight: 52.1637 kg

DRUGS (1)
  1. CINNAMON NICORETTE GUM 4MG GLAXOSMITHKLINE [Suspect]
     Indication: SMOKING CESSATION THERAPY
     Dosage: 4MG VAG
     Route: 067
     Dates: start: 20080501, end: 20090801

REACTIONS (2)
  - ACCIDENTAL EXPOSURE [None]
  - VULVOVAGINAL PAIN [None]
